FAERS Safety Report 19034330 (Version 1)
Quarter: 2021Q1

REPORT INFORMATION
  Report Type: Spontaneous
  Country: JP (occurrence: JP)
  Receive Date: 20210319
  Receipt Date: 20210319
  Transmission Date: 20210420
  Serious: Yes (Hospitalization, Other)
  Sender: FDA-Public Use
  Company Number: JP-GLAXOSMITHKLINE-JP2021JPN062230

PATIENT
  Age: 70 Year
  Sex: Female
  Weight: 53.2 kg

DRUGS (7)
  1. CEFALEXIN [Suspect]
     Active Substance: CEPHALEXIN
     Indication: HERPES SIMPLEX
     Dosage: 250 MG, QID
     Route: 048
     Dates: start: 20210205, end: 20210210
  2. VALTREX [Suspect]
     Active Substance: VALACYCLOVIR HYDROCHLORIDE
     Indication: HERPES SIMPLEX
     Dosage: 500 MG, BID
     Route: 048
     Dates: start: 20210205, end: 20210210
  3. VALTREX [Suspect]
     Active Substance: VALACYCLOVIR HYDROCHLORIDE
     Indication: ULCER
  4. CEFALEXIN [Suspect]
     Active Substance: CEPHALEXIN
     Indication: ULCER
  5. FILGRASTIM [Concomitant]
     Active Substance: FILGRASTIM
     Dosage: 150 UG, TWICE A WEEK
     Dates: start: 20200918, end: 20210122
  6. VALTREX [Suspect]
     Active Substance: VALACYCLOVIR HYDROCHLORIDE
     Indication: INFECTION
  7. CEFALEXIN [Suspect]
     Active Substance: CEPHALEXIN
     Indication: INFECTION

REACTIONS (1)
  - Neutropenia [Recovering/Resolving]

NARRATIVE: CASE EVENT DATE: 20210208
